FAERS Safety Report 5201785-7 (Version None)
Quarter: 2007Q1

REPORT INFORMATION
  Report Type: 
  Country: None (occurrence: None)
  Receive Date: 20070104
  Receipt Date: 20061220
  Transmission Date: 20070707
  Serious: Yes (Disabling, Other)
  Sender: FDA-Public Use
  Company Number: PAR_1174_2006

PATIENT
  Age: 52 Year
  Sex: Female
  Weight: 65 kg

DRUGS (27)
  1. PROPRANOLOL [Suspect]
     Indication: HYPERTENSION
     Dosage: 30 MG QDAY PO
     Route: 048
  2. PROPRANOLOL [Suspect]
     Indication: TACHYCARDIA
     Dosage: 30 MG QDAY PO
     Route: 048
  3. ASPIRIN [Concomitant]
  4. ALLOPURINOL SODIUM [Concomitant]
  5. ALPRAZOLAM [Concomitant]
  6. BELLADONNA [Concomitant]
  7. BEZAFIBRATE [Concomitant]
  8. BISOPROLOL FUMARATE [Concomitant]
  9. BROMAZEPAM [Concomitant]
  10. BUDESONIDE [Concomitant]
  11. CANDESARTAN [Concomitant]
  12. CELECOXIB [Concomitant]
  13. CERIVASTATIN [Concomitant]
  14. CHLOROQUINE [Concomitant]
  15. CLOMIPRAMINE HCL [Concomitant]
  16. CLOPIDOGREL [Concomitant]
  17. CHOLESTYRAMINE [Concomitant]
  18. CORTICOSTEROIDS [Concomitant]
  19. ENALAPRIL MALEATE [Concomitant]
  20. FLUPENTIXOL [Concomitant]
  21. LANSOPRAZOLE [Concomitant]
  22. PAROXETINE HCL [Concomitant]
  23. PRAVASTATIN [Concomitant]
  24. ROSUVASTATIN [Concomitant]
  25. SIMVASTATIN [Concomitant]
  26. TIOTROPIUM BROMIDE [Concomitant]
  27. TRAMADOL HCL [Concomitant]

REACTIONS (27)
  - ARTERITIS OBLITERANS [None]
  - ARTHRALGIA [None]
  - CACHEXIA [None]
  - CARDIAC FAILURE [None]
  - CATARACT [None]
  - DIPLOPIA [None]
  - DYSARTHRIA [None]
  - DYSPHAGIA [None]
  - EOSINOPHILIA [None]
  - EYELID PTOSIS [None]
  - HERPES VIRUS INFECTION [None]
  - HYPERHIDROSIS [None]
  - HYPERLIPIDAEMIA [None]
  - HYPERURICAEMIA [None]
  - HYPOREFLEXIA [None]
  - MITOCHONDRIAL MYOPATHY [None]
  - MITRAL VALVE INCOMPETENCE [None]
  - MUSCLE SPASMS [None]
  - MUSCULOSKELETAL STIFFNESS [None]
  - MYALGIA [None]
  - NEPHROLITHIASIS [None]
  - PERICARDIAL EFFUSION [None]
  - PNEUMONIA [None]
  - PULMONARY GRANULOMA [None]
  - RETINAL DISORDER [None]
  - URETHRAL STENOSIS [None]
  - VISUAL ACUITY REDUCED [None]
